FAERS Safety Report 17298484 (Version 4)
Quarter: 2020Q1

REPORT INFORMATION
  Report Type: Spontaneous
  Country: SE (occurrence: SE)
  Receive Date: 20200121
  Receipt Date: 20200220
  Transmission Date: 20200409
  Serious: Yes (Hospitalization, Other)
  Sender: FDA-Public Use
  Company Number: SE-ARRAY-2020-07188

PATIENT

DRUGS (12)
  1. LOSARTAN. [Concomitant]
     Active Substance: LOSARTAN
     Dosage: UNK
     Route: 065
  2. BISOPROLOL [Concomitant]
     Active Substance: BISOPROLOL
     Indication: PRODUCT USED FOR UNKNOWN INDICATION
     Dosage: UNK
     Route: 065
  3. BISOPROLOL [BISOPROLOL FUMARATE] [Concomitant]
     Active Substance: BISOPROLOL FUMARATE
     Indication: PRODUCT USED FOR UNKNOWN INDICATION
     Dosage: 10 MG
     Route: 065
  4. LOSARTAN. [Concomitant]
     Active Substance: LOSARTAN
     Indication: PRODUCT USED FOR UNKNOWN INDICATION
     Dosage: 100 MG
     Route: 065
  5. BRAFTOVI [Suspect]
     Active Substance: ENCORAFENIB
     Indication: METASTATIC MALIGNANT MELANOMA
     Dosage: 200 MG, QD (1/DAY)
     Route: 048
     Dates: start: 20191125, end: 20191206
  6. TROMBYL [Concomitant]
     Active Substance: ASPIRIN
     Indication: PRODUCT USED FOR UNKNOWN INDICATION
     Dosage: 75 MG
     Route: 065
  7. AMLODIPIN [Concomitant]
     Active Substance: AMLODIPINE BESYLATE
     Indication: PRODUCT USED FOR UNKNOWN INDICATION
     Dosage: UNK
     Route: 065
  8. MEKTOVI [Suspect]
     Active Substance: BINIMETINIB
     Indication: METASTATIC MALIGNANT MELANOMA
     Dosage: 30 MG, BID (2/DAY)
     Route: 048
     Dates: start: 20191125, end: 20191206
  9. BRAFTOVI [Suspect]
     Active Substance: ENCORAFENIB
     Dosage: 200 MG DAILY
     Route: 048
     Dates: start: 20191216, end: 20200110
  10. AMLODIPIN [AMLODIPINE MALEATE] [Concomitant]
     Indication: PRODUCT USED FOR UNKNOWN INDICATION
     Dosage: 5 MG
     Route: 065
  11. TROMBYL [Concomitant]
     Active Substance: ASPIRIN
     Dosage: UNK
     Route: 065
  12. MEKTOVI [Suspect]
     Active Substance: BINIMETINIB
     Dosage: 15 MG, BID (2/DAY)
     Route: 048
     Dates: start: 20191216, end: 20200110

REACTIONS (8)
  - Pneumonia [Recovered/Resolved]
  - C-reactive protein increased [Unknown]
  - Off label use [Unknown]
  - Chills [Recovered/Resolved]
  - Chills [Recovered/Resolved]
  - Pyrexia [Recovered/Resolved]
  - Pyrexia [Recovered/Resolved]
  - Pneumonia [Recovered/Resolved]

NARRATIVE: CASE EVENT DATE: 20191206
